FAERS Safety Report 6156528-X (Version None)
Quarter: 2009Q2

REPORT INFORMATION
  Report Type: 
  Country: None (occurrence: None)
  Receive Date: 20090416
  Receipt Date: 20090410
  Transmission Date: 20091009
  Serious: Yes (Life-Threatening, Hospitalization)
  Sender: FDA-Public Use
  Company Number: FR-AVENTIS-200911917EU

PATIENT
  Age: 89 Year
  Sex: Female

DRUGS (1)
  1. NATRILIX-SR [Suspect]
     Indication: HYPERTENSION
     Route: 048
     Dates: end: 20090308

REACTIONS (4)
  - BLOOD POTASSIUM DECREASED [None]
  - BLOOD SODIUM DECREASED [None]
  - CEREBRAL HAEMORRHAGE [None]
  - PULMONARY CONGESTION [None]
